FAERS Safety Report 9269303 (Version 1)
Quarter: 2013Q2

REPORT INFORMATION
  Report Type: Spontaneous
  Country: US (occurrence: US)
  Receive Date: 20130503
  Receipt Date: 20130503
  Transmission Date: 20140414
  Serious: No
  Sender: FDA-Public Use
  Company Number: US-PFIZER INC-2013137383

PATIENT
  Age: 91 Year
  Sex: Female
  Weight: 59.86 kg

DRUGS (11)
  1. LYRICA [Suspect]
     Indication: NEUROPATHY PERIPHERAL
     Dosage: 25 MG, 1X/DAY
     Route: 048
     Dates: start: 20130429
  2. LIPITOR [Concomitant]
     Dosage: UNK
  3. ZETIA [Concomitant]
     Dosage: UNK
  4. COUMADIN [Concomitant]
     Dosage: 2.5 MG, UNK
  5. DIOVAN [Concomitant]
     Dosage: UNK
  6. DIGOXIN [Concomitant]
     Dosage: UNK
  7. BABY ASPIRIN [Concomitant]
     Dosage: 81 MG, UNK
  8. VITAMIN B [Concomitant]
     Indication: SUPPLEMENTATION THERAPY
     Dosage: UNK, 1X/DAY
  9. VITAMIN D [Concomitant]
     Indication: SUPPLEMENTATION THERAPY
     Dosage: UNK, 1X/DAY
  10. CENTRUM [Concomitant]
     Dosage: UNK, 1X/DAY
  11. FISH OIL [Concomitant]
     Dosage: UNK

REACTIONS (2)
  - Infrequent bowel movements [Not Recovered/Not Resolved]
  - Constipation [Not Recovered/Not Resolved]
